FAERS Safety Report 6362553-6 (Version None)
Quarter: 2009Q3

REPORT INFORMATION
  Report Type: 
  Country: None (occurrence: None)
  Receive Date: 20090918
  Receipt Date: 20090604
  Transmission Date: 20100115
  Serious: No
  Sender: FDA-Public Use
  Company Number: US-ABBOTT-09P-163-0577914-00

PATIENT
  Sex: Male
  Weight: 84.898 kg

DRUGS (3)
  1. HUMIRA [Suspect]
     Indication: CROHN'S DISEASE
     Dosage: (160MG) 1 IN 1 DAYS
     Route: 058
     Dates: start: 20090602, end: 20090602
  2. HUMIRA [Suspect]
  3. MEDROL [Concomitant]
     Indication: CROHN'S DISEASE

REACTIONS (8)
  - ASTHENIA [None]
  - BLOOD PRESSURE INCREASED [None]
  - DIZZINESS [None]
  - HEADACHE [None]
  - MYALGIA [None]
  - NAUSEA [None]
  - OROPHARYNGEAL PAIN [None]
  - PAIN [None]
